FAERS Safety Report 7039507-X (Version None)
Quarter: 2010Q4

REPORT INFORMATION
  Report Type: 
  Country: None (occurrence: None)
  Receive Date: 20101012
  Receipt Date: 20101007
  Transmission Date: 20110411
  Serious: Yes (Other)
  Sender: FDA-Public Use
  Company Number: CH-WYE-G06793910

PATIENT
  Age: 64 Year
  Sex: Female

DRUGS (1)
  1. TORISEL [Suspect]
     Dosage: 25 MG, FREQUENCY UNKNOWN
     Dates: start: 20080601, end: 20081201

REACTIONS (1)
  - DISEASE PROGRESSION [None]
